FAERS Safety Report 8275427-0 (Version None)
Quarter: 2012Q2

REPORT INFORMATION
  Report Type: 
  Country: None (occurrence: None)
  Receive Date: 20120411
  Receipt Date: 20120201
  Transmission Date: 20120825
  Serious: Yes (Other)
  Sender: FDA-Public Use
  Company Number: PHFR2012IE000564

PATIENT
  Sex: Female

DRUGS (2)
  1. AMISULPRIDE [Concomitant]
     Indication: SCHIZOPHRENIA
     Dosage: 150 MG, UNK
     Route: 048
  2. CLOZARIL [Suspect]
     Indication: SCHIZOPHRENIA
     Dosage: 450 MG, UNK
     Route: 048
     Dates: start: 20010701

REACTIONS (4)
  - CHEST DISCOMFORT [None]
  - INFLUENZA LIKE ILLNESS [None]
  - UPPER RESPIRATORY TRACT INFECTION [None]
  - NASOPHARYNGITIS [None]
